FAERS Safety Report 16288324 (Version 1)
Quarter: 2019Q2

REPORT INFORMATION
  Report Type: Spontaneous
  Country: CN (occurrence: CN)
  Receive Date: 20190508
  Receipt Date: 20190508
  Transmission Date: 20190711
  Serious: Yes (Other)
  Sender: FDA-Public Use
  Company Number: CN-BAXTER-2019BAX008962

PATIENT
  Age: 64 Year
  Sex: Female
  Weight: 53 kg

DRUGS (3)
  1. DOXORUBICIN HYDROCHLORIDE LIPOSOME [Suspect]
     Active Substance: DOXORUBICIN HYDROCHLORIDE
     Indication: INVASIVE DUCTAL BREAST CARCINOMA
     Dosage: WITH 5% GS 250 ML.
     Route: 041
     Dates: start: 20190322, end: 20190322
  2. ENDOXAN [Suspect]
     Active Substance: CYCLOPHOSPHAMIDE
     Indication: INVASIVE DUCTAL BREAST CARCINOMA
     Route: 041
     Dates: start: 20190322, end: 20190322
  3. 5% GLUCOSE  INJECTION [Suspect]
     Active Substance: DEXTROSE
     Indication: MEDICATION DILUTION
     Dosage: WITH DOXORUBICIN LIPOSOME 40MG
     Route: 041
     Dates: start: 20190322, end: 20190322

REACTIONS (3)
  - Chest pain [Recovering/Resolving]
  - Electrocardiogram abnormal [Recovering/Resolving]
  - Cyanosis [Recovering/Resolving]

NARRATIVE: CASE EVENT DATE: 20190322
